FAERS Safety Report 21833659 (Version 1)
Quarter: 2023Q1

REPORT INFORMATION
  Report Type: Spontaneous
  Country: RO (occurrence: RO)
  Receive Date: 20230107
  Receipt Date: 20230107
  Transmission Date: 20230418
  Serious: Yes (Life-Threatening, Hospitalization, Disabling, Congenital Anomaly, Other)
  Sender: FDA-Public Use
  Company Number: RO-MEDO2008-L202212063

PATIENT
  Sex: Male
  Weight: 3.32 kg

DRUGS (2)
  1. AMOXICILLIN\CLAVULANIC ACID [Suspect]
     Active Substance: AMOXICILLIN\CLAVULANIC ACID
     Indication: Urinary tract infection
     Dosage: UNK
     Route: 064
  2. CEFUROXIME [Suspect]
     Active Substance: CEFUROXIME
     Indication: Urinary tract infection
     Dosage: UNK
     Route: 064

REACTIONS (3)
  - Multiple congenital abnormalities [Not Recovered/Not Resolved]
  - Foetal exposure during pregnancy [Unknown]
  - Otospondylomegaepiphyseal dysplasia [Not Recovered/Not Resolved]
